FAERS Safety Report 4788556-0 (Version None)
Quarter: 2005Q4

REPORT INFORMATION
  Report Type: 
  Country: None (occurrence: None)
  Receive Date: 20051005
  Receipt Date: 20051005
  Transmission Date: 20060501
  Serious: Yes (Hospitalization)
  Sender: FDA-Public Use
  Company Number: None

PATIENT
  Age: 26 Year
  Sex: Female

DRUGS (9)
  1. NAFCILLIN [Suspect]
     Indication: BACTERAEMIA
     Dates: start: 20050101, end: 20050307
  2. LORAZEPAM [Concomitant]
  3. CALCIUM GLUCONATE [Concomitant]
  4. MAGNESIUM [Concomitant]
  5. OXYCODONE HCL [Concomitant]
  6. PEPCID [Concomitant]
  7. POTASSIUM [Concomitant]
  8. HYDROXYZINE [Concomitant]
  9. M.V.I. [Concomitant]

REACTIONS (2)
  - DRUG ERUPTION [None]
  - RASH MACULO-PAPULAR [None]
